FAERS Safety Report 18734760 (Version 2)
Quarter: 2022Q2

REPORT INFORMATION
  Report Type: Spontaneous
  Country: US (occurrence: US)
  Receive Date: 20210113
  Receipt Date: 20220405
  Transmission Date: 20220721
  Serious: Yes (Other)
  Sender: FDA-Public Use
  Company Number: US-GLAXOSMITHKLINE-US2021GSK007758

PATIENT
  Sex: Male

DRUGS (4)
  1. ZANTAC [Suspect]
     Active Substance: RANITIDINE HYDROCHLORIDE
     Indication: Peptic ulcer
     Dosage: UNK UNK, QD
     Route: 065
     Dates: start: 198301, end: 201901
  2. ZANTAC [Suspect]
     Active Substance: RANITIDINE HYDROCHLORIDE
     Indication: Peptic ulcer
     Dosage: UNK UNK, QD
     Route: 065
     Dates: start: 198301, end: 201901
  3. ZANTAC [Suspect]
     Active Substance: RANITIDINE HYDROCHLORIDE
     Indication: Peptic ulcer
     Dosage: UNK UNK, QD
     Route: 065
     Dates: start: 198301, end: 201901
  4. RANITIDINE [Suspect]
     Active Substance: RANITIDINE
     Indication: Peptic ulcer
     Dosage: UNK UNK, QD
     Route: 065
     Dates: start: 198301, end: 201901

REACTIONS (1)
  - Tongue neoplasm malignant stage unspecified [Unknown]
